FAERS Safety Report 12083595 (Version 3)
Quarter: 2016Q2

REPORT INFORMATION
  Report Type: Spontaneous
  Country: US (occurrence: US)
  Receive Date: 20160217
  Receipt Date: 20160607
  Transmission Date: 20160815
  Serious: Yes (Other)
  Sender: FDA-Public Use
  Company Number: US-TEVA-635765USA

PATIENT
  Sex: Female

DRUGS (1)
  1. ZECUITY [Suspect]
     Active Substance: SUMATRIPTAN SUCCINATE
     Dosage: 6.5 MG / 4 HOURS
     Route: 062

REACTIONS (10)
  - Device battery issue [Unknown]
  - Product adhesion issue [Unknown]
  - Application site pruritus [Recovered/Resolved]
  - Application site burn [Recovered/Resolved]
  - Drug ineffective [Unknown]
  - Application site erythema [Recovered/Resolved]
  - Application site warmth [Recovered/Resolved]
  - Application site bruise [Recovered/Resolved]
  - Application site paraesthesia [Recovered/Resolved]
  - Application site pain [Recovered/Resolved]
